FAERS Safety Report 9685940 (Version 1)
Quarter: 2013Q4

REPORT INFORMATION
  Report Type: Spontaneous
  Country: US (occurrence: US)
  Receive Date: 20131113
  Receipt Date: 20131113
  Transmission Date: 20140711
  Serious: No
  Sender: FDA-Public Use
  Company Number: US-BAYER-2013-133242

PATIENT
  Age: 80 Year
  Sex: Male
  Weight: 82.54 kg

DRUGS (20)
  1. ALEVE CAPLET [Suspect]
     Indication: BACK PAIN
     Dosage: 2 DF, QD
     Route: 048
     Dates: start: 2013
  2. BAYER ASPIRIN REGIMEN REGULAR 325 MG STRENGTH [Suspect]
     Indication: ANTICOAGULANT THERAPY
     Dosage: UNK UNK, QD
     Route: 048
     Dates: start: 201304
  3. NYSTATIN [Concomitant]
  4. AMLODIPINE [Concomitant]
  5. CRESTOR [Concomitant]
  6. METFORMIN HYDROCHLORIDE [Concomitant]
  7. GLYBURIDE [Concomitant]
  8. METOPROLOL [Concomitant]
  9. LORATADINE [Concomitant]
  10. FINASTERIDE [Concomitant]
  11. LISINOPRIL [Concomitant]
  12. NIACIN [Concomitant]
  13. CETIRIZINE [Concomitant]
  14. VITAMIN B3 [Concomitant]
  15. VITAMIN C [Concomitant]
  16. CENTRUM SILVER [Concomitant]
  17. GLUCOSAMINE [Concomitant]
  18. CITRACAL [Concomitant]
  19. FISH OIL [Concomitant]
  20. B COMPLEX WITH VITAMIN C [Concomitant]

REACTIONS (1)
  - Off label use [None]
